FAERS Safety Report 6306439-1 (Version None)
Quarter: 2009Q3

REPORT INFORMATION
  Report Type: 
  Country: None (occurrence: None)
  Receive Date: 20090810
  Receipt Date: 20090803
  Transmission Date: 20100115
  Serious: Yes (Death, Hospitalization)
  Sender: FDA-Public Use
  Company Number: 2008-182753-NL

PATIENT
  Age: 25 Year
  Sex: Female
  Weight: 54.4316 kg

DRUGS (2)
  1. NUVARING [Suspect]
     Indication: CONTRACEPTION
     Dosage: 1 DF; QM; VAG
     Route: 067
     Dates: start: 20061201, end: 20071104
  2. ORTHO EVRA [Concomitant]

REACTIONS (7)
  - ASTHENIA [None]
  - BETA HAEMOLYTIC STREPTOCOCCAL INFECTION [None]
  - GENITAL ABSCESS [None]
  - GROIN ABSCESS [None]
  - RESPIRATORY FAILURE [None]
  - SHOCK [None]
  - TOXIC SHOCK SYNDROME [None]
